FAERS Safety Report 7240883-3 (Version None)
Quarter: 2011Q1

REPORT INFORMATION
  Report Type: 
  Country: None (occurrence: None)
  Receive Date: 20110120
  Receipt Date: 20110120
  Transmission Date: 20110831
  Serious: Yes (Other)
  Sender: FDA-Public Use
  Company Number: None

PATIENT
  Age: 81 Year
  Sex: Female
  Weight: 81.6475 kg

DRUGS (1)
  1. CIPROFLOXACIN HCL [Suspect]
     Indication: URINARY TRACT INFECTION
     Dosage: 250MG 2X DAILY PO (TOOK 4 PILLS ONLY)
     Route: 048
     Dates: start: 20101224

REACTIONS (4)
  - NEUROPATHY PERIPHERAL [None]
  - ANXIETY [None]
  - BURNING SENSATION [None]
  - FEAR [None]
